FAERS Safety Report 11590091 (Version 2)
Quarter: 2019Q2

REPORT INFORMATION
  Report Type: Spontaneous
  Country: US (occurrence: US)
  Receive Date: 20151002
  Receipt Date: 20190424
  Transmission Date: 20190711
  Serious: Yes (Death, Hospitalization, Other)
  Sender: FDA-Public Use
  Company Number: US-009507513-1510USA000886

PATIENT
  Sex: Male
  Weight: 107.48 kg

DRUGS (2)
  1. JANUVIA [Suspect]
     Active Substance: SITAGLIPTIN PHOSPHATE
     Indication: TYPE 2 DIABETES MELLITUS
     Dosage: 100 MILLIGRAM, QD
     Route: 048
     Dates: start: 20061215, end: 201012
  2. VICTOZA [Suspect]
     Active Substance: LIRAGLUTIDE
     Indication: TYPE 2 DIABETES MELLITUS
     Dosage: 1.8 MG/3ML ONCE DAILY
     Route: 065
     Dates: start: 20101216, end: 201206

REACTIONS (19)
  - Diastolic dysfunction [Unknown]
  - Metastases to liver [Not Recovered/Not Resolved]
  - Splenic infarction [Unknown]
  - Lymphadenopathy [Unknown]
  - Atrial enlargement [Unknown]
  - Coagulopathy [Unknown]
  - Shoulder operation [Unknown]
  - Drug hypersensitivity [Unknown]
  - Gout [Unknown]
  - Intestinal mass [Unknown]
  - Pancreatic carcinoma metastatic [Fatal]
  - Aortic arteriosclerosis [Unknown]
  - Troponin increased [Unknown]
  - Adrenal mass [Unknown]
  - Cerebrovascular accident [Unknown]
  - Acute kidney injury [Unknown]
  - Chest pain [Unknown]
  - Renal infarct [Unknown]
  - Gastrooesophageal reflux disease [Unknown]

NARRATIVE: CASE EVENT DATE: 2012
